FAERS Safety Report 7783245-2 (Version None)
Quarter: 2011Q3

REPORT INFORMATION
  Report Type: 
  Country: None (occurrence: None)
  Receive Date: 20110926
  Receipt Date: 20110913
  Transmission Date: 20111222
  Serious: Yes (Death, Hospitalization)
  Sender: FDA-Public Use
  Company Number: CLOF-1000309

PATIENT
  Age: 30 Year
  Sex: Male
  Weight: 70 kg

DRUGS (2)
  1. ACICLOVIR (ACICLOVIR SODIUM) [Concomitant]
  2. EVOLTRA (CLOFARABINE) SOLUTION FOR INFUSION [Suspect]
     Indication: ACUTE LYMPHOCYTIC LEUKAEMIA
     Dosage: 4 DAYS, INTRAVENOUS
     Route: 042
     Dates: start: 20071130, end: 20071204

REACTIONS (2)
  - TOXIC EPIDERMAL NECROLYSIS [None]
  - MULTI-ORGAN FAILURE [None]
